FAERS Safety Report 13343799 (Version 1)
Quarter: 2017Q1

REPORT INFORMATION
  Report Type: Spontaneous
  Country: US (occurrence: US)
  Receive Date: 20170316
  Receipt Date: 20170316
  Transmission Date: 20170428
  Serious: No
  Sender: FDA-Public Use
  Company Number: US-TEVA-741670USA

PATIENT
  Age: 46 Year
  Sex: Female
  Weight: 79.45 kg

DRUGS (6)
  1. QNASL [Suspect]
     Active Substance: BECLOMETHASONE DIPROPIONATE
     Route: 065
  2. LEVOCETIRIZINE [Concomitant]
     Active Substance: LEVOCETIRIZINE
  3. QVAR [Suspect]
     Active Substance: BECLOMETHASONE DIPROPIONATE
     Indication: ASTHMA
     Dosage: TWO PUFFS TWICE DAY
     Dates: start: 2011, end: 2013
  4. SINGULAIR [Concomitant]
     Active Substance: MONTELUKAST SODIUM
  5. QVAR [Suspect]
     Active Substance: BECLOMETHASONE DIPROPIONATE
     Dosage: TWO PUFFS TWICE A DAY
     Dates: start: 2013, end: 2015
  6. QVAR [Suspect]
     Active Substance: BECLOMETHASONE DIPROPIONATE
     Dosage: ONE PUFF

REACTIONS (7)
  - Weight decreased [Unknown]
  - Sinusitis [Unknown]
  - Oropharyngeal pain [Unknown]
  - Nasal congestion [Unknown]
  - Pulmonary function test decreased [Unknown]
  - Dysphonia [Unknown]
  - Chest pain [Unknown]

NARRATIVE: CASE EVENT DATE: 201612
